FAERS Safety Report 4536632-X (Version None)
Quarter: 2004Q4

REPORT INFORMATION
  Report Type: 
  Country: None (occurrence: None)
  Receive Date: 20041220
  Receipt Date: 20041209
  Transmission Date: 20050328
  Serious: Yes (Other)
  Sender: FDA-Public Use
  Company Number: 2004066728

PATIENT
  Age: 36 Year
  Sex: Female

DRUGS (8)
  1. GEODON [Suspect]
     Indication: BIPOLAR DISORDER
     Dosage: 80 MG (40 MG, 2 IN 1 D), ORAL
     Route: 048
  2. QUETIAPINE FUMARATE (QUETIAPINE FUMARATE) [Suspect]
     Indication: ILL-DEFINED DISORDER
     Dates: end: 20030801
  3. TOPIRAMATE [Concomitant]
  4. CITALOPRAM HYDROBROMIDE [Concomitant]
  5. VENLAFAXINE HCL [Concomitant]
  6. DIPHENHYDRAMINE HCL [Concomitant]
  7. ASPIRIN [Concomitant]
  8. METHYLPHENIDATE HYDROCHLORIDE (MEDHYLPHENIDATE HYDROCHLORIDE) [Concomitant]

REACTIONS (7)
  - BUNDLE BRANCH BLOCK RIGHT [None]
  - DRUG EFFECT DECREASED [None]
  - DRUG INEFFECTIVE [None]
  - ELECTROCARDIOGRAM QT CORRECTED INTERVAL PROLONGED [None]
  - ELECTROCARDIOGRAM ST-T CHANGE [None]
  - ELECTROCARDIOGRAM T WAVE ABNORMAL [None]
  - MYOCARDIAL ISCHAEMIA [None]
